FAERS Safety Report 19488554 (Version 2)
Quarter: 2022Q1

REPORT INFORMATION
  Report Type: Spontaneous
  Country: BR (occurrence: BR)
  Receive Date: 20210702
  Receipt Date: 20220311
  Transmission Date: 20220423
  Serious: Yes (Hospitalization, Other)
  Sender: FDA-Public Use
  Company Number: BR-ORGANON-O2106BRA002245

PATIENT
  Age: 82 Year
  Sex: Female
  Weight: 59 kg

DRUGS (6)
  1. EZETIMIBE [Suspect]
     Active Substance: EZETIMIBE
     Indication: Blood cholesterol increased
     Dosage: 1 TABLET - 10 MG, AT NIGHT
     Route: 048
     Dates: start: 2012
  2. AMLODIPINE BESYLATE\PERINDOPRIL ARGININE [Concomitant]
     Active Substance: AMLODIPINE BESYLATE\PERINDOPRIL ARGININE
     Indication: Hypertension
     Dosage: 1 TABLET - 3.5 / 2.5 MG - IN THE MORNING
     Route: 048
     Dates: start: 2018
  3. BISOPROLOL FUMARATE [Concomitant]
     Active Substance: BISOPROLOL FUMARATE
     Indication: Cardiac disorder
     Dosage: 1 TABLET - 2.5 MG - IN THE MORNING BUT THE DOSAGE WAS REDUCED
     Route: 048
  4. BROMAZEPAM [Concomitant]
     Active Substance: BROMAZEPAM
     Indication: Panic disorder
     Dosage: 1 TABLET - 3 MG - AT NIGHT
     Route: 048
  5. BROMAZEPAM [Concomitant]
     Active Substance: BROMAZEPAM
     Indication: Depression
  6. PURAN [Concomitant]
     Active Substance: LEVOTHYROXINE SODIUM
     Indication: Autoimmune thyroiditis
     Dosage: 62.5 MICROGRAM

REACTIONS (18)
  - Breast cancer [Recovered/Resolved]
  - Bradycardia [Unknown]
  - Nephrolithiasis [Not Recovered/Not Resolved]
  - Alopecia [Unknown]
  - Fibromyalgia [Unknown]
  - Administration site hypersensitivity [Unknown]
  - Gingival bleeding [Recovering/Resolving]
  - Oral candidiasis [Unknown]
  - Fall [Recovering/Resolving]
  - Osteoporosis [Unknown]
  - Gastrooesophageal reflux disease [Unknown]
  - Pain [Recovering/Resolving]
  - Depression [Unknown]
  - Pain [Unknown]
  - Urticaria [Unknown]
  - Fatigue [Unknown]
  - Dyspnoea [Unknown]
  - COVID-19 [Unknown]

NARRATIVE: CASE EVENT DATE: 20150101
